FAERS Safety Report 5336193-1 (Version None)
Quarter: 2007Q2

REPORT INFORMATION
  Report Type: 
  Country: None (occurrence: None)
  Receive Date: 20070315
  Receipt Date: 20061212
  Transmission Date: 20071010
  Serious: Yes (Other)
  Sender: FDA-Public Use
  Company Number: 06-001469

PATIENT
  Age: 27 Year
  Sex: Female
  Weight: 54.4 kg

DRUGS (3)
  1. FEMCON FE(NORETHINDRONE, ETHINYL ESTRADIOL) CHEWABLE, 0.4MG/35MCG [Suspect]
     Indication: CONTRACEPTION
     Dosage: 0.4 MG/35MCG, SINGLE, ORAL
     Route: 048
     Dates: start: 20061210, end: 20061210
  2. LOESTRIN 24 FE [Suspect]
     Indication: CONTRACEPTION
     Dosage: 20/1000 UG, QD, ORAL
     Route: 048
     Dates: start: 20061211
  3. BACTRIM [Concomitant]

REACTIONS (3)
  - PRURITUS [None]
  - RASH GENERALISED [None]
  - SLEEP DISORDER [None]
